FAERS Safety Report 9692680 (Version 1)
Quarter: 2013Q4

REPORT INFORMATION
  Report Type: Report from Study
  Country: AR (occurrence: AR)
  Receive Date: 20131118
  Receipt Date: 20131118
  Transmission Date: 20140711
  Serious: Yes (Other)
  Sender: FDA-Public Use
  Company Number: PHHY2013AR130986

PATIENT
  Sex: Male

DRUGS (1)
  1. DIOVAN [Suspect]
     Indication: CEREBROVASCULAR ACCIDENT
     Dosage: 1 DF (80) (UNIT UNSPECIFIED), PER DAY
     Route: 048
     Dates: start: 201205

REACTIONS (2)
  - Scoliosis [Recovering/Resolving]
  - Back pain [Recovering/Resolving]
